FAERS Safety Report 5479794-2 (Version None)
Quarter: 2007Q4

REPORT INFORMATION
  Report Type: 
  Country: None (occurrence: None)
  Receive Date: 20071003
  Receipt Date: 20070917
  Transmission Date: 20080405
  Serious: Yes (Other)
  Sender: FDA-Public Use
  Company Number: 6388/6019180

PATIENT
  Age: 18 Year
  Sex: Male

DRUGS (3)
  1. AMOXICILLIN [Suspect]
     Indication: HELICOBACTER INFECTION
     Dosage: 1 G
  2. CLARITHROMYCIN [Suspect]
     Indication: HELICOBACTER INFECTION
     Dosage: 500 MG
  3. MORPHINE [Concomitant]

REACTIONS (4)
  - ANXIETY [None]
  - DELUSION [None]
  - HALLUCINATION [None]
  - INSOMNIA [None]
